FAERS Safety Report 22130065 (Version 1)
Quarter: 2023Q1

REPORT INFORMATION
  Report Type: Spontaneous
  Country: US (occurrence: None)
  Receive Date: 20230322
  Receipt Date: 20230322
  Transmission Date: 20230418
  Serious: Yes (Life-Threatening)
  Sender: FDA-Public Use
  Company Number: None

PATIENT
  Age: 56 Year
  Sex: Female
  Weight: 78.75 kg

DRUGS (11)
  1. ESTRADIOL [Suspect]
     Active Substance: ESTRADIOL
     Indication: Atrophic vulvovaginitis
     Dosage: OTHER QUANTITY : 1 APPLICATION;?OTHER FREQUENCY : TAPERED;?
     Route: 067
     Dates: start: 20230222, end: 20230321
  2. ASPIRIN [Concomitant]
     Active Substance: ASPIRIN
  3. LASIX [Concomitant]
     Active Substance: FUROSEMIDE
  4. apironolactone [Concomitant]
  5. ATORVASTATIN [Concomitant]
     Active Substance: ATORVASTATIN
  6. MONTELUKAST [Concomitant]
     Active Substance: MONTELUKAST SODIUM
  7. FLONASE [Concomitant]
     Active Substance: FLUTICASONE PROPIONATE
  8. ALBUTEROL [Concomitant]
     Active Substance: ALBUTEROL
  9. multivitamin [Concomitant]
  10. ADEK vitamin [Concomitant]
  11. ZYRTEC [Concomitant]
     Active Substance: CETIRIZINE HYDROCHLORIDE

REACTIONS (5)
  - Dyspnoea [None]
  - Swelling face [None]
  - Lip swelling [None]
  - Swollen tongue [None]
  - Pharyngeal swelling [None]

NARRATIVE: CASE EVENT DATE: 20230322
